FAERS Safety Report 20829760 (Version 5)
Quarter: 2022Q3

REPORT INFORMATION
  Report Type: Report from Study
  Country: BR (occurrence: BR)
  Receive Date: 20220513
  Receipt Date: 20220901
  Transmission Date: 20221027
  Serious: Yes (Hospitalization)
  Sender: FDA-Public Use
  Company Number: BR-BIOGEN-2022BI01120992

PATIENT
  Sex: Female
  Weight: 82 kg

DRUGS (3)
  1. TECFIDERA [Suspect]
     Active Substance: DIMETHYL FUMARATE
     Indication: Multiple sclerosis
     Dosage: MAINTENANCE DOSE
     Route: 050
     Dates: start: 202108, end: 2022
  2. TECFIDERA [Suspect]
     Active Substance: DIMETHYL FUMARATE
     Route: 050
     Dates: start: 202108, end: 202203
  3. ALPRAZOLAM [Concomitant]
     Active Substance: ALPRAZOLAM
     Indication: Depression
     Route: 050
     Dates: start: 202201

REACTIONS (10)
  - Multiple sclerosis relapse [Not Recovered/Not Resolved]
  - Irritability [Not Recovered/Not Resolved]
  - Ocular hyperaemia [Recovered/Resolved]
  - Tremor [Not Recovered/Not Resolved]
  - Mental disorder [Unknown]
  - Transient ischaemic attack [Recovered/Resolved with Sequelae]
  - Product dose omission in error [Unknown]
  - Depression [Not Recovered/Not Resolved]
  - Emotional distress [Unknown]
  - Erythema [Recovered/Resolved]

NARRATIVE: CASE EVENT DATE: 20220101
